FAERS Safety Report 17891019 (Version 1)
Quarter: 2020Q2

REPORT INFORMATION
  Report Type: Spontaneous
  Country: US (occurrence: US)
  Receive Date: 20200612
  Receipt Date: 20200612
  Transmission Date: 20200714
  Serious: No
  Sender: FDA-Public Use
  Company Number: US-PERRIGO-20US005018

PATIENT
  Age: 73 Year
  Sex: Female
  Weight: 61.22 kg

DRUGS (4)
  1. BIOTIN [Concomitant]
     Active Substance: BIOTIN
     Indication: SUPPLEMENTATION THERAPY
     Dosage: UNK
     Route: 065
     Dates: start: 2018
  2. MINOXIDIL. [Suspect]
     Active Substance: MINOXIDIL
     Indication: ALOPECIA
     Dosage: UNKNOWN, NIGHTLY
     Route: 061
     Dates: start: 201810
  3. IRON [Concomitant]
     Active Substance: IRON
     Indication: IRON DEFICIENCY
     Dosage: UNK
     Route: 065
     Dates: start: 2018
  4. RALOXIFENE. [Concomitant]
     Active Substance: RALOXIFENE
     Indication: ROUTINE HEALTH MAINTENANCE
     Dosage: UNK
     Route: 065
     Dates: start: 2017

REACTIONS (2)
  - Incorrect dose administered [Not Recovered/Not Resolved]
  - Drug ineffective [Unknown]

NARRATIVE: CASE EVENT DATE: 201810
